FAERS Safety Report 19470955 (Version 1)
Quarter: 2021Q2

REPORT INFORMATION
  Report Type: Other
  Country: SK (occurrence: SK)
  Receive Date: 20210629
  Receipt Date: 20210629
  Transmission Date: 20210717
  Serious: Yes (Other)
  Sender: FDA-Public Use
  Company Number: SK-ROCHE-2858418

PATIENT
  Age: 39 Year
  Sex: Female

DRUGS (18)
  1. RITUXIMAB. [Suspect]
     Active Substance: RITUXIMAB
     Indication: DIFFUSE LARGE B-CELL LYMPHOMA
     Route: 065
  2. COLISTIN [Concomitant]
     Active Substance: COLISTIN
  3. DOXORUBICIN [Suspect]
     Active Substance: DOXORUBICIN
     Indication: DIFFUSE LARGE B-CELL LYMPHOMA
     Route: 065
  4. ETOPOSIDE. [Concomitant]
     Active Substance: ETOPOSIDE
  5. TOCILIZUMAB. [Suspect]
     Active Substance: TOCILIZUMAB
     Indication: COVID-19
     Route: 065
  6. PREDNISONE. [Suspect]
     Active Substance: PREDNISONE
     Indication: DIFFUSE LARGE B-CELL LYMPHOMA
     Route: 065
  7. AVIBACTAM [Concomitant]
     Active Substance: AVIBACTAM
  8. CYTOSINE ARABINOSIDE [Concomitant]
     Active Substance: CYTARABINE
  9. METHOTREXATE. [Concomitant]
     Active Substance: METHOTREXATE
  10. LEVOFLOXACIN. [Concomitant]
     Active Substance: LEVOFLOXACIN
  11. MELPHALAN. [Concomitant]
     Active Substance: MELPHALAN
  12. CASPOFUNGIN [Concomitant]
     Active Substance: CASPOFUNGIN
  13. CYCLOPHOSPHAMIDE. [Suspect]
     Active Substance: CYCLOPHOSPHAMIDE
     Indication: DIFFUSE LARGE B-CELL LYMPHOMA
     Route: 065
  14. VINCRISTINE [Suspect]
     Active Substance: VINCRISTINE
     Indication: DIFFUSE LARGE B-CELL LYMPHOMA
     Route: 065
  15. IFOSFAMIDE. [Concomitant]
     Active Substance: IFOSFAMIDE
  16. CARBOPLATIN. [Concomitant]
     Active Substance: CARBOPLATIN
  17. BENDAMUSTINE [Concomitant]
     Active Substance: BENDAMUSTINE
  18. CEFTAZIDIME. [Concomitant]
     Active Substance: CEFTAZIDIME

REACTIONS (4)
  - Paraparesis [Unknown]
  - Off label use [Unknown]
  - Pneumonia [Unknown]
  - Neuropathy peripheral [Unknown]
